FAERS Safety Report 9767049 (Version 2)
Quarter: 2014Q4

REPORT INFORMATION
  Report Type: Spontaneous
  Country: US (occurrence: US)
  Receive Date: 20131217
  Receipt Date: 20141217
  Transmission Date: 20150529
  Serious: No
  Sender: FDA-Public Use
  Company Number: US-GLAXOSMITHKLINE-A1037761A

PATIENT
  Age: 57 Year
  Sex: Male

DRUGS (2)
  1. VOTRIENT [Suspect]
     Active Substance: PAZOPANIB HYDROCHLORIDE
     Indication: RENAL CANCER
     Dosage: INITIALLY (4) 200 MG TABLETS; REDUCED TO (3) 200 MG TABLETS ON 25JUL201302JULY2014 UNKNOWN DOSING
     Route: 048
     Dates: start: 20130709
  2. VOTRIENT [Suspect]
     Active Substance: PAZOPANIB HYDROCHLORIDE
     Dates: start: 20130709

REACTIONS (13)
  - Flatulence [Unknown]
  - Penile pain [Recovering/Resolving]
  - Dysuria [Recovering/Resolving]
  - Scab [Recovering/Resolving]
  - Ill-defined disorder [Recovering/Resolving]
  - Drug dose omission [Unknown]
  - Epistaxis [Unknown]
  - Diarrhoea [Unknown]
  - Pain [Recovering/Resolving]
  - Genital ulceration [Recovering/Resolving]
  - Eye pain [Unknown]
  - Balanoposthitis [Recovering/Resolving]
  - Discomfort [Unknown]

NARRATIVE: CASE EVENT DATE: 201307
